FAERS Safety Report 7473746-9 (Version None)
Quarter: 2011Q2

REPORT INFORMATION
  Report Type: 
  Country: None (occurrence: None)
  Receive Date: 20110511
  Receipt Date: 20110502
  Transmission Date: 20111010
  Serious: Yes (Hospitalization, Other)
  Sender: FDA-Public Use
  Company Number: US-ASTRAZENECA-2010SE30760

PATIENT
  Age: 68 Year
  Sex: Female

DRUGS (1)
  1. NEXIUM [Suspect]
     Route: 048

REACTIONS (8)
  - OSTEOPOROSIS [None]
  - HAEMOGLOBIN DECREASED [None]
  - NEOPLASM MALIGNANT [None]
  - REGURGITATION [None]
  - CARDIAC DISORDER [None]
  - MALAISE [None]
  - SURGERY [None]
  - COLITIS [None]
